FAERS Safety Report 7628942-4 (Version None)
Quarter: 2011Q3

REPORT INFORMATION
  Report Type: 
  Country: None (occurrence: None)
  Receive Date: 20110701
  Receipt Date: 20110404
  Transmission Date: 20111222
  Serious: Yes (Other)
  Sender: FDA-Public Use
  Company Number: 7052286

PATIENT
  Age: 24 Year
  Sex: Female
  Weight: 57 kg

DRUGS (3)
  1. REBIF [Suspect]
     Indication: MULTIPLE SCLEROSIS
     Dosage: 22 MCG, 3 IN 1 WK, SUBCUTANEOUS
     Route: 058
     Dates: start: 20110314, end: 20110404
  2. OBETROL [Concomitant]
  3. UNSPECIFIED NATURAL REMEDIES [Concomitant]

REACTIONS (2)
  - EXPOSURE TO COMMUNICABLE DISEASE [None]
  - HEPATITIS [None]
